FAERS Safety Report 9204013 (Version 1)
Quarter: 2013Q2

REPORT INFORMATION
  Report Type: Spontaneous
  Country: BR (occurrence: BR)
  Receive Date: 20130402
  Receipt Date: 20130402
  Transmission Date: 20140414
  Serious: Yes (Other)
  Sender: FDA-Public Use
  Company Number: PHHY2013BR030979

PATIENT
  Sex: Male
  Weight: 48 kg

DRUGS (1)
  1. RITALIN LA [Suspect]
     Indication: ATTENTION DEFICIT/HYPERACTIVITY DISORDER
     Dosage: 1 DF, UNK
     Dates: start: 2012

REACTIONS (2)
  - Wound [Recovered/Resolved]
  - Pruritus [Recovered/Resolved]
